FAERS Safety Report 9837748 (Version 1)
Quarter: 2014Q1

REPORT INFORMATION
  Report Type: Spontaneous
  Country: IT (occurrence: IT)
  Receive Date: 20140123
  Receipt Date: 20140123
  Transmission Date: 20141002
  Serious: Yes (Hospitalization)
  Sender: FDA-Public Use
  Company Number: IT-SA-2014SA006427

PATIENT
  Age: 80 Year
  Sex: Male

DRUGS (7)
  1. PLAVIX [Suspect]
     Indication: THROMBOSIS PROPHYLAXIS
     Dosage: STRENGTH: 75 MG
     Route: 048
     Dates: start: 20130101, end: 20131010
  2. COUMADIN [Suspect]
     Indication: ATRIAL FIBRILLATION
     Route: 048
     Dates: start: 20130101, end: 20131010
  3. CARDIOASPIRIN [Suspect]
     Indication: THROMBOSIS PROPHYLAXIS
     Route: 048
     Dates: start: 20130101, end: 20131010
  4. PEPTAZOL [Concomitant]
     Dosage: 1 DOSAGE UNIT
     Route: 048
  5. LEVEMIR [Concomitant]
     Dosage: STRENGTH: 100 U/ML
     Route: 058
  6. NOVORAPID [Concomitant]
     Dosage: STRENGTH: 100 U/ML
     Route: 058
  7. FORZAAR [Concomitant]
     Dosage: STRENGTH: 100 MG/25 MG
     Route: 048

REACTIONS (1)
  - Anaemia [Unknown]
